FAERS Safety Report 6911886-0 (Version None)
Quarter: 2010Q3

REPORT INFORMATION
  Report Type: 
  Country: None (occurrence: None)
  Receive Date: 20100806
  Receipt Date: 20080507
  Transmission Date: 20110219
  Serious: No
  Sender: FDA-Public Use
  Company Number: US-PFIZER INC-2007075122

PATIENT
  Sex: Female
  Weight: 90.72 kg

DRUGS (6)
  1. DETROL LA [Suspect]
     Indication: URINARY INCONTINENCE
     Dates: start: 20070101, end: 20070101
  2. ENABLEX [Suspect]
     Indication: URINARY INCONTINENCE
     Dates: start: 20070101
  3. LASIX [Concomitant]
  4. K-DUR [Concomitant]
  5. ALDACTONE [Concomitant]
  6. COREG [Concomitant]

REACTIONS (1)
  - OEDEMA PERIPHERAL [None]
